FAERS Safety Report 6788263-9 (Version None)
Quarter: 2010Q2

REPORT INFORMATION
  Report Type: 
  Country: None (occurrence: None)
  Receive Date: 20100623
  Receipt Date: 20080211
  Transmission Date: 20101027
  Serious: No
  Sender: FDA-Public Use
  Company Number: US-PFIZER INC-2008013365

PATIENT
  Sex: Male
  Weight: 79.5 kg

DRUGS (6)
  1. GEODON [Suspect]
     Indication: MANIA
     Dates: start: 20080205
  2. DEPAKOTE [Concomitant]
  3. KLONOPIN [Concomitant]
  4. LEXAPRO [Concomitant]
  5. LAMICTAL [Concomitant]
  6. XANAX [Concomitant]
     Indication: PANIC ATTACK

REACTIONS (7)
  - DIZZINESS [None]
  - HYPOAESTHESIA ORAL [None]
  - LIP PAIN [None]
  - NAUSEA [None]
  - PAIN [None]
  - THERAPEUTIC RESPONSE UNEXPECTED [None]
  - UNEVALUABLE EVENT [None]
